FAERS Safety Report 7346798-4 (Version None)
Quarter: 2011Q1

REPORT INFORMATION
  Report Type: 
  Country: None (occurrence: None)
  Receive Date: 20110311
  Receipt Date: 20110302
  Transmission Date: 20110831
  Serious: Yes (Other)
  Sender: FDA-Public Use
  Company Number: JP-JNJFOC-20090801418

PATIENT
  Sex: Male
  Weight: 56 kg

DRUGS (30)
  1. SOLU-MEDROL [Concomitant]
     Route: 042
  2. SOLU-MEDROL [Concomitant]
     Route: 042
  3. PROGRAF [Concomitant]
     Route: 042
  4. ALBUMIN (HUMAN) [Concomitant]
     Route: 042
  5. SANDIMMUNE [Suspect]
     Indication: PRODUCT USED FOR UNKNOWN INDICATION
     Route: 048
  6. BAKTAR [Concomitant]
     Indication: PROPHYLAXIS
     Route: 048
  7. PREDONINE [Concomitant]
     Route: 048
  8. SOLU-MEDROL [Concomitant]
     Route: 042
  9. ENBREL [Concomitant]
     Route: 058
  10. ITRIZOLE [Suspect]
     Indication: PRODUCT USED FOR UNKNOWN INDICATION
     Route: 042
  11. CRAVIT [Concomitant]
     Indication: PROPHYLAXIS
  12. CRAVIT [Concomitant]
  13. PREDONINE [Concomitant]
     Route: 048
  14. TAZOCIN [Concomitant]
     Route: 042
  15. PROGRAF [Concomitant]
     Route: 042
  16. GANCICLOVIR [Concomitant]
     Indication: ASPARTATE AMINOTRANSFERASE INCREASED
     Route: 042
  17. ITRIZOLE [Suspect]
     Route: 042
  18. SOLU-MEDROL [Concomitant]
     Route: 042
  19. ITRIZOLE [Suspect]
     Route: 042
  20. SANDIMMUNE [Suspect]
     Route: 048
  21. SANDIMMUNE [Suspect]
     Route: 048
  22. SANDIMMUNE [Suspect]
     Route: 048
  23. SOLU-MEDROL [Concomitant]
     Route: 042
  24. SOLU-MEDROL [Concomitant]
     Route: 042
  25. PROGRAF [Concomitant]
     Route: 042
  26. DIFLUCAN [Concomitant]
     Indication: PROPHYLAXIS
     Route: 048
  27. SOLU-MEDROL [Concomitant]
     Route: 042
  28. PROGRAF [Concomitant]
     Route: 042
  29. PROGRAF [Concomitant]
     Route: 042
  30. PROGRAF [Concomitant]
     Route: 042

REACTIONS (6)
  - HYPOXIA [None]
  - ALANINE AMINOTRANSFERASE INCREASED [None]
  - ASPARTATE AMINOTRANSFERASE INCREASED [None]
  - CYTOMEGALOVIRUS TEST POSITIVE [None]
  - BLOOD ALKALINE PHOSPHATASE INCREASED [None]
  - BLOOD UREA INCREASED [None]
